FAERS Safety Report 11149427 (Version 1)
Quarter: 2015Q2

REPORT INFORMATION
  Report Type: Spontaneous
  Country: US (occurrence: None)
  Receive Date: 20150528
  Receipt Date: 20150528
  Transmission Date: 20150821
  Serious: No
  Sender: FDA-Public Use
  Company Number: None

PATIENT
  Age: 77 Year
  Sex: Female
  Weight: 65.77 kg

DRUGS (8)
  1. RETAIN-A FOR ACNE [Concomitant]
  2. TRIAMINCOLINE NASAL SPRAY [Concomitant]
  3. 1 MULTI-VITAMIN/DAY [Concomitant]
  4. HARVONI [Suspect]
     Active Substance: LEDIPASVIR\SOFOSBUVIR
     Indication: HEPATITIS C
     Dosage: 1 PILL
     Route: 048
     Dates: start: 20150105, end: 20150329
  5. LOSARTAN 100 MG [Concomitant]
  6. GENERIC PREVACID 30 MG [Concomitant]
  7. BENZECLIN FOR ACNE [Concomitant]
  8. 1 BENEDRYL AT BEDTIME [Concomitant]

REACTIONS (2)
  - Pain [None]
  - Constipation [None]

NARRATIVE: CASE EVENT DATE: 20150402
